FAERS Safety Report 8560340-1 (Version None)
Quarter: 2012Q3

REPORT INFORMATION
  Report Type: 
  Country: None (occurrence: None)
  Receive Date: 20120802
  Receipt Date: 20120727
  Transmission Date: 20120928
  Serious: Yes (Death, Other)
  Sender: FDA-Public Use
  Company Number: CA-ELI_LILLY_AND_COMPANY-CA201206004912

PATIENT
  Sex: Male
  Weight: 76 kg

DRUGS (15)
  1. FERROUS GLUCONATE [Concomitant]
     Dosage: 35 MG, QD
     Dates: start: 20111026
  2. JUICE PLUS [Concomitant]
     Dosage: UNK, UNKNOWN
     Route: 065
  3. SPIRONOLACTONE [Concomitant]
     Dosage: 25 MG, UNK
     Dates: start: 20120313
  4. SENOKOT [Concomitant]
     Dosage: UNK
     Dates: start: 20100921
  5. LASIX [Concomitant]
     Dosage: 1 MG, UNK
     Dates: start: 20110328
  6. FERROUS FUMARATE [Concomitant]
     Dosage: UNK
     Dates: start: 20091109
  7. COUMADIN [Concomitant]
  8. ADCIRCA [Suspect]
     Dosage: 40 MG, BID
     Dates: start: 20100820
  9. LORAZEPAM [Concomitant]
     Dosage: 1 MG, UNKNOWN
     Dates: start: 20120514
  10. METOPROLOL TARTRATE [Concomitant]
     Dosage: UNK, UNKNOWN
     Route: 065
     Dates: start: 20111123
  11. ATROVENT [Concomitant]
     Dosage: UNK, UNKNOWN
     Route: 065
  12. CRESTOR [Concomitant]
     Dosage: UNK, UNKNOWN
     Route: 065
     Dates: start: 20111026
  13. DOCUSATE [Concomitant]
     Dosage: UNK
     Dates: start: 20091112
  14. ADCIRCA [Suspect]
     Indication: PULMONARY HYPERTENSION
     Dosage: 20 MG, BID
     Route: 048
     Dates: start: 20100531
  15. DIGOXIN [Concomitant]
     Dosage: UNK
     Dates: start: 20111123

REACTIONS (8)
  - PULMONARY HYPERTENSION [None]
  - AORTIC ANEURYSM [None]
  - ANAEMIA [None]
  - INTERMITTENT CLAUDICATION [None]
  - EPISTAXIS [None]
  - RIGHT VENTRICULAR FAILURE [None]
  - HYPOTHYROIDISM [None]
  - HYPERTENSION [None]
